FAERS Safety Report 20890690 (Version 1)
Quarter: 2022Q2

REPORT INFORMATION
  Report Type: Spontaneous
  Country: US (occurrence: US)
  Receive Date: 20220530
  Receipt Date: 20220530
  Transmission Date: 20220720
  Serious: No
  Sender: FDA-Public Use
  Company Number: US-BAUSCH-BL-2022-012857

PATIENT
  Age: 56 Year
  Sex: Female
  Weight: 80.812 kg

DRUGS (2)
  1. PYRIDOSTIGMINE BROMIDE [Suspect]
     Active Substance: PYRIDOSTIGMINE BROMIDE
     Indication: Myasthenia gravis
     Route: 048
  2. NAUSEA [Concomitant]
     Indication: Product used for unknown indication
     Route: 065

REACTIONS (4)
  - Ocular discomfort [Unknown]
  - Pain [Unknown]
  - Dysarthria [Unknown]
  - Product substitution issue [Unknown]
